FAERS Safety Report 8499851 (Version 3)
Quarter: 2012Q4

REPORT INFORMATION
  Report Type: 
  Country: US (occurrence: US)
  Receive Date: 20120409
  Receipt Date: 20120904
  Transmission Date: 20130627
  Serious: Yes (Other)
  Sender: FDA-Public Use
  Company Number: US-BAYER-2012-031630

PATIENT
  Age: 47 Year
  Sex: Female
  Weight: 68.03 kg

DRUGS (6)
  1. YAZ [Suspect]
     Indication: POLYCYSTIC OVARIES
     Dosage: UNK
     Dates: start: 2006, end: 201004
  2. YASMIN [Suspect]
     Indication: MENSTRUATION IRREGULAR
     Dosage: UNK
     Dates: start: 200110, end: 2006
  3. YASMIN [Suspect]
     Indication: POLYCYSTIC OVARIES
  4. LEXAPRO [Concomitant]
     Dosage: 10 mg, UNK
  5. CEPHALEXIN [Concomitant]
     Dosage: 500 mg, UNK
     Route: 048
     Dates: start: 20100211
  6. AZITHROMYCIN [Concomitant]
     Dosage: 250 mg, UNK, two TS tay ( tablets today), then one T- D (tablet a day)
     Route: 048
     Dates: start: 20100216

REACTIONS (6)
  - Deep vein thrombosis [Recovered/Resolved]
  - Gait disturbance [Recovered/Resolved]
  - Pain in extremity [Recovered/Resolved]
  - Pain [Recovered/Resolved]
  - Injury [None]
  - Emotional distress [None]
